FAERS Safety Report 6702451-9 (Version None)
Quarter: 2010Q2

REPORT INFORMATION
  Report Type: 
  Country: None (occurrence: None)
  Receive Date: 20100429
  Receipt Date: 20100421
  Transmission Date: 20101027
  Serious: Yes (Life-Threatening)
  Sender: FDA-Public Use
  Company Number: B0639381A

PATIENT
  Sex: Male
  Weight: 80 kg

DRUGS (24)
  1. ALKERAN [Suspect]
     Indication: STEM CELL TRANSPLANT
     Dosage: 250MG PER DAY
     Route: 042
     Dates: start: 20090425, end: 20090425
  2. RITUXAN [Suspect]
     Indication: STEM CELL TRANSPLANT
     Dosage: 700MG PER DAY
     Route: 042
     Dates: start: 20090421, end: 20090421
  3. ENDOXAN [Suspect]
     Indication: STEM CELL TRANSPLANT
     Dosage: 4400MG PER DAY
     Dates: start: 20090422, end: 20090423
  4. VEPESID [Suspect]
     Indication: STEM CELL TRANSPLANT
     Dosage: 580MG PER DAY
     Route: 042
     Dates: start: 20090422, end: 20090424
  5. DECADRON [Suspect]
     Indication: STEM CELL TRANSPLANT
     Dosage: 40MG PER DAY
     Dates: start: 20090422, end: 20090425
  6. FUNGUARD [Suspect]
     Dosage: 50MG PER DAY
     Dates: start: 20090422, end: 20090507
  7. NEUTROGIN [Concomitant]
     Dates: start: 20090428, end: 20090506
  8. GASTER D [Concomitant]
     Dosage: 20MG PER DAY
     Route: 048
     Dates: start: 20081210
  9. MUCOSTA [Concomitant]
     Dosage: 300MG PER DAY
     Route: 048
     Dates: start: 20081210
  10. MAGMITT [Concomitant]
     Dosage: 1980MG PER DAY
     Route: 048
     Dates: start: 20081214
  11. HYDROCORTISONE [Concomitant]
     Dosage: 500MG PER DAY
     Route: 048
     Dates: start: 20090427, end: 20090428
  12. SOSEGON [Concomitant]
     Dosage: 15MG PER DAY
     Route: 048
     Dates: start: 20090427
  13. ATARAX [Concomitant]
     Dosage: 25MG PER DAY
     Route: 048
     Dates: start: 20090427
  14. FIRSTCIN [Concomitant]
     Dosage: 2G PER DAY
     Route: 048
     Dates: start: 20090427, end: 20090501
  15. MEROPEN [Concomitant]
     Dosage: 1G PER DAY
     Route: 048
     Dates: start: 20090510, end: 20090515
  16. PREDONINE [Concomitant]
     Dosage: 70MG PER DAY
     Route: 048
     Dates: start: 20090429, end: 20090430
  17. PREDONINE [Concomitant]
     Dosage: 50MG PER DAY
     Route: 048
     Dates: start: 20090501, end: 20090501
  18. PREDONINE [Concomitant]
     Dosage: 40MG PER DAY
     Route: 048
     Dates: start: 20090502, end: 20090503
  19. PREDONINE [Concomitant]
     Dosage: 20MG PER DAY
     Route: 048
     Dates: start: 20090504, end: 20090505
  20. PREDONINE [Concomitant]
     Dosage: 10MG PER DAY
     Route: 048
     Dates: start: 20090506, end: 20090507
  21. PREDONINE [Concomitant]
     Dosage: 5MG PER DAY
     Route: 048
     Dates: start: 20090508, end: 20090510
  22. ALDACTONE [Concomitant]
     Dosage: 25MG PER DAY
     Route: 048
     Dates: start: 20081205
  23. WARFARIN SODIUM [Concomitant]
     Dosage: 2MG PER DAY
     Route: 048
     Dates: start: 20090515
  24. UNKNOWN DRUG [Concomitant]
     Dosage: 12000IU PER DAY
     Route: 048
     Dates: start: 20090425, end: 20090430

REACTIONS (1)
  - PERICARDITIS [None]
